FAERS Safety Report 5488351-3 (Version None)
Quarter: 2007Q4

REPORT INFORMATION
  Report Type: 
  Country: None (occurrence: None)
  Receive Date: 20071017
  Receipt Date: 20071015
  Transmission Date: 20080405
  Serious: Yes (Hospitalization)
  Sender: FDA-Public Use
  Company Number: B0478595A

PATIENT
  Age: 80 Year
  Sex: Male

DRUGS (16)
  1. REQUIP [Suspect]
     Indication: PARKINSON'S DISEASE
     Route: 048
     Dates: start: 20070320, end: 20070529
  2. ZOLPIDEM [Suspect]
     Indication: INSOMNIA
     Dosage: 30MG SINGLE DOSE
     Route: 048
     Dates: start: 20040101
  3. NEODOPASOL [Concomitant]
     Indication: PARKINSON'S DISEASE
     Route: 048
     Dates: start: 20040101
  4. FP [Concomitant]
     Indication: PARKINSON'S DISEASE
     Route: 048
     Dates: start: 20040101
  5. RIVOTRIL [Concomitant]
     Indication: PARKINSON'S DISEASE
     Route: 048
     Dates: start: 20040101
  6. OPALMON [Concomitant]
     Indication: BLADDER CANCER
     Route: 048
     Dates: start: 20050101
  7. AMARYL [Concomitant]
     Indication: DIABETES MELLITUS
     Route: 048
     Dates: start: 20040101
  8. GLUCOBAY [Concomitant]
     Indication: DIABETES MELLITUS
     Route: 048
     Dates: start: 20040101
  9. THEOLONG [Concomitant]
     Indication: ASTHMA
     Dosage: .8G PER DAY
     Route: 048
     Dates: start: 20040101
  10. ONON [Concomitant]
     Indication: ASTHMA
     Route: 048
     Dates: start: 20040101
  11. NORVASC [Concomitant]
     Indication: HYPERTENSION
     Route: 048
     Dates: start: 20040101
  12. FUROSEMIDE [Concomitant]
     Indication: HYPERTENSION
     Route: 048
     Dates: start: 20040101
  13. LANSOPRAZOLE [Concomitant]
     Route: 048
     Dates: start: 20040101
  14. ALLOPURINOL [Concomitant]
     Route: 048
     Dates: start: 20040101
  15. ATARAX [Concomitant]
     Indication: PRURITUS
     Route: 048
     Dates: start: 20040101
  16. EBASTEL [Concomitant]
     Indication: PRURITUS
     Route: 048
     Dates: start: 20040101

REACTIONS (6)
  - DIARRHOEA [None]
  - DRUG TOXICITY [None]
  - FEELING OF DESPAIR [None]
  - GAIT DISTURBANCE [None]
  - INSOMNIA [None]
  - OVERDOSE [None]
